FAERS Safety Report 8621951-8 (Version None)
Quarter: 2012Q3

REPORT INFORMATION
  Report Type: 
  Country: None (occurrence: None)
  Receive Date: 20120822
  Receipt Date: 20120822
  Transmission Date: 20120928
  Serious: Yes (Other)
  Sender: FDA-Public Use
  Company Number: None

PATIENT
  Age: 60 Year
  Sex: Male
  Weight: 88.4514 kg

DRUGS (2)
  1. RISPERIDONE [Suspect]
     Indication: PSYCHOTIC DISORDER
     Dosage: PO 1 1/2 TABS AT HS
     Route: 048
     Dates: start: 20110710, end: 20111102
  2. BENADRYL [Suspect]

REACTIONS (1)
  - RAYNAUD'S PHENOMENON [None]
